FAERS Safety Report 7569236-5 (Version None)
Quarter: 2011Q2

REPORT INFORMATION
  Report Type: 
  Country: None (occurrence: None)
  Receive Date: 20110623
  Receipt Date: 20110614
  Transmission Date: 20111010
  Serious: Yes (Hospitalization, Other)
  Sender: FDA-Public Use
  Company Number: US-ASTRAZENECA-2011SE36459

PATIENT
  Age: 36 Year
  Sex: Female
  Weight: 68 kg

DRUGS (7)
  1. LITHIUM [Concomitant]
  2. SEROQUEL [Suspect]
     Indication: BIPOLAR DISORDER
     Route: 048
     Dates: start: 20010101, end: 20090101
  3. XANAX [Concomitant]
  4. SEROQUEL [Suspect]
     Route: 048
     Dates: start: 20090101, end: 20100901
  5. SLEEP AIDS [Suspect]
  6. SEROQUEL [Suspect]
     Route: 048
     Dates: start: 20100901
  7. TYLENOL-500 [Suspect]

REACTIONS (15)
  - NERVOUS SYSTEM DISORDER [None]
  - DELUSION [None]
  - GRAND MAL CONVULSION [None]
  - BLOOD IRON DECREASED [None]
  - DRUG DOSE OMISSION [None]
  - INCREASED APPETITE [None]
  - GALLBLADDER DISORDER [None]
  - DISINHIBITION [None]
  - ASTHENIA [None]
  - HALLUCINATION [None]
  - SUICIDE ATTEMPT [None]
  - SUICIDAL IDEATION [None]
  - WEIGHT INCREASED [None]
  - VOMITING [None]
  - VERBAL ABUSE [None]
